FAERS Safety Report 20887114 (Version 1)
Quarter: 2022Q2

REPORT INFORMATION
  Report Type: Spontaneous
  Country: PL (occurrence: PL)
  Receive Date: 20220528
  Receipt Date: 20220528
  Transmission Date: 20220721
  Serious: Yes (Other)
  Sender: FDA-Public Use
  Company Number: None

PATIENT
  Age: 41 Year
  Sex: Female
  Weight: 53 kg

DRUGS (3)
  1. FLUOROURACIL [Suspect]
     Active Substance: FLUOROURACIL
     Indication: Colon cancer
     Dosage: UNIT DOSE 1600 MG,FREQUENCY TIME 24 HOURS, DURATION 2 DAYS
     Route: 042
     Dates: start: 20180709, end: 20180711
  2. OXALIPLATIN [Suspect]
     Active Substance: OXALIPLATIN
     Indication: Colon cancer
     Dosage: UNIT DOSE 136MG,FREQUENCY TIME 24 HOURS,
     Route: 042
     Dates: start: 20180709, end: 20180709
  3. AVASTIN [Suspect]
     Active Substance: BEVACIZUMAB
     Indication: Colon cancer
     Dosage: UNIT DOSE 530 MG,FREQUENCY TIME 24 HOURS,
     Route: 042
     Dates: start: 20180709, end: 20180709

REACTIONS (1)
  - Neutropenia [Unknown]

NARRATIVE: CASE EVENT DATE: 20180723
